FAERS Safety Report 16005858 (Version 1)
Quarter: 2019Q1

REPORT INFORMATION
  Report Type: Spontaneous
  Country: US (occurrence: US)
  Receive Date: 20190226
  Receipt Date: 20190226
  Transmission Date: 20190418
  Serious: No
  Sender: FDA-Public Use
  Company Number: US-BAYER-2019-039529

PATIENT

DRUGS (1)
  1. PRECOSE [Suspect]
     Active Substance: ACARBOSE
     Dosage: UNK

REACTIONS (2)
  - Gastric disorder [None]
  - Drug hypersensitivity [None]
